FAERS Safety Report 23988507 (Version 2)
Quarter: 2025Q1

REPORT INFORMATION
  Report Type: Report from Study
  Country: GB (occurrence: GB)
  Receive Date: 20240619
  Receipt Date: 20250102
  Transmission Date: 20250409
  Serious: Yes (Other)
  Sender: SAMSUNG BIOEPIS
  Company Number: GB-SAMSUNG BIOEPIS-SB-2024-13586

PATIENT
  Age: 64 Year
  Sex: Female

DRUGS (2)
  1. IMRALDI [Suspect]
     Active Substance: ADALIMUMAB
     Indication: Rheumatoid arthritis
     Dosage: 40 MG/ 0.8 ML;
     Route: 058
     Dates: start: 20240220
  2. IMRALDI [Suspect]
     Active Substance: ADALIMUMAB
     Dosage: 40 MG/0.8 ML;
     Route: 058

REACTIONS (16)
  - Loss of consciousness [Unknown]
  - Syncope [Recovered/Resolved]
  - Lower respiratory tract infection [Not Recovered/Not Resolved]
  - Pain [Unknown]
  - Dizziness [Unknown]
  - Joint swelling [Unknown]
  - Hyperhidrosis [Unknown]
  - Malaise [Unknown]
  - Headache [Unknown]
  - Vomiting [Recovered/Resolved]
  - Viral infection [Unknown]
  - Cough [Unknown]
  - Nasopharyngitis [Unknown]
  - Infection [Unknown]
  - Platelet disorder [Unknown]
  - Therapeutic response shortened [Unknown]
